FAERS Safety Report 10206781 (Version 1)
Quarter: 2014Q2

REPORT INFORMATION
  Report Type: Spontaneous
  Country: US (occurrence: None)
  Receive Date: 20140528
  Receipt Date: 20140528
  Transmission Date: 20141212
  Serious: Yes (Life-Threatening, Other)
  Sender: FDA-Public Use
  Company Number: None

PATIENT
  Age: 56 Year
  Sex: Male
  Weight: 83.92 kg

DRUGS (1)
  1. INVOKANA [Suspect]
     Indication: BLOOD GLUCOSE INCREASED
     Route: 048
     Dates: start: 20140517, end: 20140525

REACTIONS (11)
  - Arrhythmia [None]
  - Asthenia [None]
  - Headache [None]
  - Chest pain [None]
  - Feeling hot [None]
  - Hyperhidrosis [None]
  - Dizziness [None]
  - Back pain [None]
  - Flatulence [None]
  - Ejection fraction decreased [None]
  - Cardiac failure congestive [None]
